FAERS Safety Report 5985926-X (Version None)
Quarter: 2008Q4

REPORT INFORMATION
  Report Type: 
  Country: None (occurrence: None)
  Receive Date: 20081205
  Receipt Date: 20081205
  Transmission Date: 20090506
  Serious: Yes (Death, Hospitalization)
  Sender: FDA-Public Use
  Company Number: None

PATIENT
  Age: 67 Year
  Sex: Male
  Weight: 87.9978 kg

DRUGS (14)
  1. OXALIPLATIN [Suspect]
     Indication: HEAD AND NECK CANCER
     Dosage: 150MG IV Q 21 D
     Route: 042
  2. DOCETAXEL [Suspect]
     Indication: HEAD AND NECK CANCER
     Dosage: 68 MG IV Q 21 D
     Route: 042
  3. ALBUTEROL/IPRATROP [Concomitant]
  4. ALPRAZOLAM [Concomitant]
  5. CIPROFLOXACIN HCL [Concomitant]
  6. DOCUSATE NA/SENNOSIDES [Concomitant]
  7. NEUPOGEN [Concomitant]
  8. LORAZEPAM [Concomitant]
  9. FLUCONAZOLE [Concomitant]
  10. MOMETASONE FUROATE [Concomitant]
  11. ONDANSETRON [Concomitant]
  12. OXYCODONE HCL [Concomitant]
  13. PILOCARPINE HCL [Concomitant]
  14. RANITIDINE HCL [Concomitant]

REACTIONS (14)
  - ACUTE RESPIRATORY FAILURE [None]
  - CACHEXIA [None]
  - FALL [None]
  - HEAD AND NECK CANCER [None]
  - HYPOTENSION [None]
  - MALNUTRITION [None]
  - METASTASIS [None]
  - MOVEMENT DISORDER [None]
  - NO THERAPEUTIC RESPONSE [None]
  - PNEUMONIA ASPIRATION [None]
  - PULMONARY OEDEMA [None]
  - SEPTIC SHOCK [None]
  - SKIN LACERATION [None]
  - SKIN LESION [None]
